FAERS Safety Report 12559852 (Version 4)
Quarter: 2017Q1

REPORT INFORMATION
  Report Type: Spontaneous
  Country: PE (occurrence: PE)
  Receive Date: 20160715
  Receipt Date: 20170203
  Transmission Date: 20170428
  Serious: Yes (Hospitalization, Other)
  Sender: FDA-Public Use
  Company Number: PE-PFIZER INC-2016332094

PATIENT
  Age: 64 Year
  Sex: Female

DRUGS (1)
  1. XALATAN [Suspect]
     Active Substance: LATANOPROST
     Indication: GLAUCOMA
     Dosage: UNK
     Dates: end: 20161215

REACTIONS (4)
  - Joint injury [Unknown]
  - Large intestinal haemorrhage [Recovered/Resolved]
  - Fall [Unknown]
  - Diverticulitis [Recovered/Resolved]
